FAERS Safety Report 14505211 (Version 1)
Quarter: 2018Q1

REPORT INFORMATION
  Report Type: Report from Study
  Country: BR (occurrence: BR)
  Receive Date: 20180208
  Receipt Date: 20180208
  Transmission Date: 20180509
  Serious: Yes (Hospitalization)
  Sender: FDA-Public Use
  Company Number: PHHY2018BR020314

PATIENT
  Sex: Male
  Weight: 72 kg

DRUGS (1)
  1. ACLASTA [Suspect]
     Active Substance: ZOLEDRONIC ACID
     Indication: OSTEOPOROSIS
     Dosage: 1 DF (5 MG/ 100 ML), Q12MO
     Route: 042
     Dates: start: 20170829, end: 20170829

REACTIONS (2)
  - Drug ineffective [Unknown]
  - Staphylococcal infection [Unknown]
